FAERS Safety Report 6420615-9 (Version None)
Quarter: 2009Q4

REPORT INFORMATION
  Report Type: 
  Country: None (occurrence: None)
  Receive Date: 20091027
  Receipt Date: 20091012
  Transmission Date: 20100525
  Serious: Yes (Death, Hospitalization)
  Sender: FDA-Public Use
  Company Number: KV200900601

PATIENT
  Age: 81 Year
  Sex: Male
  Weight: 99.3 kg

DRUGS (19)
  1. MORPHINE SULFATE [Suspect]
     Indication: PAIN
     Dosage: 300 MG, 5 TABLETS BID, ORAL
     Route: 048
     Dates: start: 20061026, end: 20070512
  2. HYDROCODONE BITARTRATE + ACETAMINOPHEN [Suspect]
     Indication: PAIN
     Dosage: 1-2 TABLETS Q 6 HR PRN, ORAL
     Route: 048
     Dates: start: 20030101, end: 20070512
  3. LASIX [Concomitant]
  4. MICRO-K (POTASSIUM CHLORIDE) [Concomitant]
  5. OMEPRAZOLE [Concomitant]
  6. PREDNISONE TAB [Concomitant]
  7. ATIVAN [Concomitant]
  8. TRAZODONE HCL [Concomitant]
  9. ASPIRIN [Concomitant]
  10. WELLBUTRIN [Concomitant]
  11. CELEBREX [Concomitant]
  12. PROZAC [Concomitant]
  13. DUONEB (IPRAPRATROPIUM BROMIDE, SALBUTAMOL SULFATE) [Concomitant]
  14. AEROBID [Concomitant]
  15. VIAGRA [Concomitant]
  16. TRIAMCINOLONE /00031902/ (TRIAMCINOLONE ACETONIDE) CREAM [Concomitant]
  17. FLEXERIL /00428402/ (CYCLOBENZAPRINE HYDROCHLORIDE) [Concomitant]
  18. QUININE (QUININE) [Concomitant]
  19. OXYGEN (OXYGEN) [Concomitant]

REACTIONS (31)
  - ANXIETY [None]
  - CARDIAC FAILURE CONGESTIVE [None]
  - CHEST PAIN [None]
  - CHRONIC OBSTRUCTIVE PULMONARY DISEASE [None]
  - CONDITION AGGRAVATED [None]
  - CONFUSIONAL STATE [None]
  - DEFORMITY [None]
  - DRUG ABUSE [None]
  - DYSPNOEA [None]
  - EMPHYSEMA [None]
  - FATIGUE [None]
  - HYPERCAPNIA [None]
  - HYPERKALAEMIA [None]
  - HYPERTENSION [None]
  - HYPOXIC ENCEPHALOPATHY [None]
  - INJURY [None]
  - LETHARGY [None]
  - LIFE EXPECTANCY SHORTENED [None]
  - NOCTURNAL DYSPNOEA [None]
  - ORTHOPNOEA [None]
  - PAIN [None]
  - PNEUMONIA [None]
  - PRODUCTIVE COUGH [None]
  - RENAL FAILURE ACUTE [None]
  - RESPIRATORY FAILURE [None]
  - RESPIRATORY RATE INCREASED [None]
  - SEPSIS [None]
  - SOMNOLENCE [None]
  - TREATMENT NONCOMPLIANCE [None]
  - UNRESPONSIVE TO STIMULI [None]
  - URINE OUTPUT DECREASED [None]
